FAERS Safety Report 24625123 (Version 1)
Quarter: 2024Q4

REPORT INFORMATION
  Report Type: Spontaneous
  Country: US (occurrence: US)
  Receive Date: 20241115
  Receipt Date: 20241115
  Transmission Date: 20250114
  Serious: Yes (Other)
  Sender: PFIZER
  Company Number: US-PFIZER INC-PV202400041370

PATIENT
  Age: 83 Year
  Sex: Female
  Weight: 49.2 kg

DRUGS (4)
  1. IBRANCE [Suspect]
     Active Substance: PALBOCICLIB
     Indication: Breast cancer metastatic
     Dosage: 125 MG, CYCLIC (TAKE 1 CAPSULE (125 MG) BY MOUTH DAILY ON DAYS 1-21 OF A 28 DAY CYCLE)
     Route: 048
     Dates: start: 20240413
  2. IBRANCE [Suspect]
     Active Substance: PALBOCICLIB
     Dosage: 1 CAP (100 MG) BY MOUTH DAILY FOR 21 DAYS WITH 7 DAYS OFF
     Route: 048
     Dates: start: 20240511
  3. IBRANCE [Suspect]
     Active Substance: PALBOCICLIB
     Dosage: CYCLE 3 WITH DOSE REDUCTION OF 100 MG PO (PER ORAL) BID (2X/DAY)
     Route: 048
  4. TAMOXIFEN [Concomitant]
     Active Substance: TAMOXIFEN
     Dosage: UNK

REACTIONS (8)
  - Neutropenia [Unknown]
  - Blood urea increased [Unknown]
  - Blood creatinine increased [Unknown]
  - Protein total decreased [Unknown]
  - Blood albumin decreased [Unknown]
  - Off label use [Unknown]
  - Off label use [Unknown]
  - Product use issue [Unknown]

NARRATIVE: CASE EVENT DATE: 20240413
